FAERS Safety Report 5069063-7 (Version None)
Quarter: 2006Q3

REPORT INFORMATION
  Report Type: 
  Country: None (occurrence: None)
  Receive Date: 20060801
  Receipt Date: 20060801
  Transmission Date: 20061208
  Serious: Yes (Life-Threatening, Hospitalization)
  Sender: FDA-Public Use
  Company Number: None

PATIENT
  Age: 73 Year
  Sex: Female
  Weight: 112 kg

DRUGS (4)
  1. PLAVIX [Suspect]
     Indication: CATHETERISATION CARDIAC
     Dosage: 300 MG X 1 THEN 75 MG  DAILY  PO
     Route: 048
     Dates: start: 20060617, end: 20060620
  2. PLAVIX [Suspect]
     Indication: STENT PLACEMENT
     Dosage: 300 MG X 1 THEN 75 MG  DAILY  PO
     Route: 048
     Dates: start: 20060617, end: 20060620
  3. ANGIOMAX [Suspect]
     Indication: CATHETERISATION CARDIAC
     Dosage: 79 MG BOLUS + 37 ML/HR INFUSION   ONCE  IV
     Route: 042
     Dates: start: 20060619, end: 20060619
  4. ANGIOMAX [Suspect]
     Indication: STENT PLACEMENT
     Dosage: 79 MG BOLUS + 37 ML/HR INFUSION   ONCE  IV
     Route: 042
     Dates: start: 20060619, end: 20060619

REACTIONS (2)
  - POST PROCEDURAL HAEMORRHAGE [None]
  - RETROPERITONEAL HAEMORRHAGE [None]
